FAERS Safety Report 25453800 (Version 1)
Quarter: 2025Q2

REPORT INFORMATION
  Report Type: Spontaneous
  Country: DE (occurrence: DE)
  Receive Date: 20250619
  Receipt Date: 20250619
  Transmission Date: 20250716
  Serious: Yes (Hospitalization, Other)
  Sender: AUROBINDO
  Company Number: DE-AMK-288164

PATIENT
  Age: 15 Year
  Sex: Female
  Weight: 70 kg

DRUGS (1)
  1. RISPERIDONE [Suspect]
     Active Substance: RISPERIDONE
     Indication: Bipolar disorder
     Dosage: 3 MILLIGRAM, ONCE A DAY (1-0-0)
     Route: 048
     Dates: start: 20250224, end: 20250305

REACTIONS (8)
  - Hallucination, visual [Unknown]
  - Hallucination, auditory [Unknown]
  - Insomnia [Unknown]
  - Anxiety [Unknown]
  - Mood swings [Unknown]
  - Weight increased [Unknown]
  - Mental fatigue [Unknown]
  - Product substitution issue [Unknown]

NARRATIVE: CASE EVENT DATE: 20250224
